FAERS Safety Report 7150847-6 (Version None)
Quarter: 2010Q4

REPORT INFORMATION
  Report Type: 
  Country: None (occurrence: None)
  Receive Date: 20101210
  Receipt Date: 20101126
  Transmission Date: 20110411
  Serious: Yes (Hospitalization)
  Sender: FDA-Public Use
  Company Number: ZA-ROCHE-741511

PATIENT
  Age: 35 Year
  Sex: Female

DRUGS (1)
  1. ISOTRETINOIN [Suspect]
     Route: 048
     Dates: start: 20101101

REACTIONS (8)
  - ARTHRALGIA [None]
  - BALANCE DISORDER [None]
  - FEELING OF BODY TEMPERATURE CHANGE [None]
  - HEADACHE [None]
  - HEARING IMPAIRED [None]
  - SOMNOLENCE [None]
  - VIITH NERVE PARALYSIS [None]
  - VOMITING [None]
